FAERS Safety Report 14766283 (Version 2)
Quarter: 2018Q2

REPORT INFORMATION
  Report Type: Spontaneous
  Country: US (occurrence: US)
  Receive Date: 20180416
  Receipt Date: 20180416
  Transmission Date: 20180711
  Serious: Yes (Other)
  Sender: FDA-Public Use
  Company Number: US-ASTELLAS-2017US037914

PATIENT
  Age: 32 Year
  Sex: Male

DRUGS (2)
  1. PROGRAF [Suspect]
     Active Substance: TACROLIMUS\TACROLIMUS ANHYDROUS
     Indication: HEART TRANSPLANT
     Dosage: 0.5 MG, ONCE DAILY
     Route: 048
     Dates: start: 20160816
  2. PROGRAF [Suspect]
     Active Substance: TACROLIMUS\TACROLIMUS ANHYDROUS
     Indication: HEART TRANSPLANT
     Route: 048
     Dates: start: 20160816

REACTIONS (1)
  - Cerebrovascular accident [Unknown]

NARRATIVE: CASE EVENT DATE: 20170810
